FAERS Safety Report 9203445 (Version 1)
Quarter: 2013Q1

REPORT INFORMATION
  Report Type: Spontaneous
  Country: AU (occurrence: None)
  Receive Date: 20130328
  Receipt Date: 20130328
  Transmission Date: 20140127
  Serious: Yes (Other)
  Sender: FDA-Public Use
  Company Number: USA/AUS/13/0028711

PATIENT
  Age: 27 Year
  Sex: Female

DRUGS (2)
  1. RISPERIDONE [Suspect]
     Indication: SCHIZOPHRENIA
     Route: 048
  2. RISPERIDONE CONSTA [Suspect]
     Indication: SCHIZOPHRENIA

REACTIONS (4)
  - Treatment noncompliance [None]
  - Hyperprolactinaemia [None]
  - Breast tenderness [None]
  - Galactorrhoea [None]
